FAERS Safety Report 17299504 (Version 1)
Quarter: 2020Q1

REPORT INFORMATION
  Report Type: Other
  Country: US (occurrence: US)
  Receive Date: 20200121
  Receipt Date: 20200121
  Transmission Date: 20200409
  Serious: Yes (Death)
  Sender: FDA-Public Use
  Company Number: US-TEIKOKU PHARMA USA-TPU2020-00028

PATIENT
  Age: 35 Year
  Sex: Male

DRUGS (7)
  1. SIROLIMUS. [Concomitant]
     Active Substance: SIROLIMUS
     Indication: GRAFT VERSUS HOST DISEASE
     Route: 048
  2. URSODIOL. [Concomitant]
     Active Substance: URSODIOL
     Indication: HEPATOBILLIARY DISORDER PROPHYLAXIS
     Route: 048
  3. ASPARAGINASE [Concomitant]
     Active Substance: ASPARAGINASE
     Indication: LEUKAEMIA
     Dosage: FOUR CYCLES, COMPLETED TWO MONTHS BEFORE HIS MOST RECENT HOSPITALIZATION
  4. POSACONAZOLE [Concomitant]
     Active Substance: POSACONAZOLE
     Indication: ANTIBIOTIC PROPHYLAXIS
  5. NORFLOXACIN [Concomitant]
     Active Substance: NORFLOXACIN
     Indication: ANTIBIOTIC PROPHYLAXIS
  6. TACROLIMUS. [Concomitant]
     Active Substance: TACROLIMUS
     Indication: GRAFT VERSUS HOST DISEASE
     Dosage: DOSED TO ACHIEVE A WHOLE BLOOD TROUGH CONCENTRATION OF 5-15 NG/ML
  7. LIDOCAINE PATCH [Suspect]
     Active Substance: LIDOCAINE
     Indication: NEUROPATHY PERIPHERAL
     Route: 061

REACTIONS (1)
  - Venoocclusive liver disease [None]
